FAERS Safety Report 4507716-7 (Version None)
Quarter: 2004Q4

REPORT INFORMATION
  Report Type: 
  Country: None (occurrence: None)
  Receive Date: 20041123
  Receipt Date: 20041115
  Transmission Date: 20050328
  Serious: Yes (Hospitalization)
  Sender: FDA-Public Use
  Company Number: FR-BRISTOL-MYERS SQUIBB COMPANY-12767984

PATIENT
  Age: 42 Year
  Sex: Male
  Weight: 96 kg

DRUGS (4)
  1. VIDEX EC [Suspect]
     Indication: HIV INFECTION
     Route: 048
  2. REYATAZ [Suspect]
     Indication: HIV INFECTION
     Route: 048
     Dates: start: 20040504
  3. NORVIR [Suspect]
     Indication: HIV INFECTION
     Dates: start: 20040504
  4. EPIVIR [Suspect]
     Indication: HIV INFECTION

REACTIONS (2)
  - ISCHAEMIC CARDIOMYOPATHY [None]
  - JAUNDICE [None]
